FAERS Safety Report 11177140 (Version 3)
Quarter: 2015Q3

REPORT INFORMATION
  Report Type: Spontaneous
  Country: JP (occurrence: JP)
  Receive Date: 20150610
  Receipt Date: 20150804
  Transmission Date: 20151125
  Serious: Yes (Other)
  Sender: FDA-Public Use
  Company Number: JP-ASTELLAS-2015JP009848

PATIENT
  Age: 33 Year
  Sex: Female
  Weight: 48 kg

DRUGS (13)
  1. MYSLEE [Suspect]
     Active Substance: ZOLPIDEM TARTRATE
     Route: 048
     Dates: start: 20130804
  2. TAKEPRON [Concomitant]
     Active Substance: LANSOPRAZOLE
     Indication: STILL^S DISEASE ADULT ONSET
     Route: 048
     Dates: start: 20130529
  3. CALONAL [Concomitant]
     Active Substance: ACETAMINOPHEN
     Indication: ARTHRALGIA
     Route: 048
     Dates: start: 20131211
  4. DUPHASTON [Concomitant]
     Active Substance: DYDROGESTERONE
     Indication: THREATENED LABOUR
     Route: 048
     Dates: start: 20130708, end: 20130803
  5. BONALON [Concomitant]
     Active Substance: ALENDRONATE SODIUM
     Indication: OSTEOPOROSIS PROPHYLAXIS
     Route: 048
     Dates: end: 20130629
  6. PROGRAF [Suspect]
     Active Substance: TACROLIMUS\TACROLIMUS ANHYDROUS
     Indication: STILL^S DISEASE ADULT ONSET
     Route: 048
     Dates: start: 20130122
  7. DACTIL [Concomitant]
     Indication: THREATENED LABOUR
     Route: 048
     Dates: start: 20130804, end: 20130818
  8. MUCOSTA [Concomitant]
     Active Substance: REBAMIPIDE
     Indication: PROPHYLAXIS
     Route: 048
     Dates: end: 20130528
  9. UTEMERIN [Concomitant]
     Active Substance: RITODRINE
     Indication: THREATENED LABOUR
     Route: 048
     Dates: start: 20131221, end: 20140220
  10. PREDNISOLONE. [Suspect]
     Active Substance: PREDNISOLONE
     Indication: STILL^S DISEASE ADULT ONSET
     Route: 048
     Dates: start: 200605
  11. MAGMITT [Concomitant]
     Active Substance: MAGNESIUM OXIDE
     Indication: CONSTIPATION
     Route: 048
     Dates: start: 20131227
  12. MYSLEE [Suspect]
     Active Substance: ZOLPIDEM TARTRATE
     Indication: INSOMNIA
     Dosage: UNK UNK, UNKNOWN FREQ.
     Route: 048
  13. FERROMIA [Concomitant]
     Active Substance: FERROUS CITRATE
     Indication: IRON DEFICIENCY ANAEMIA
     Route: 048
     Dates: start: 20131202, end: 20140226

REACTIONS (7)
  - Threatened labour [Recovered/Resolved]
  - Arthralgia [Recovering/Resolving]
  - Iron deficiency anaemia [Recovering/Resolving]
  - Constipation [Recovered/Resolved]
  - Maternal exposure during pregnancy [Unknown]
  - Off label use [Unknown]
  - Insomnia [Not Recovered/Not Resolved]

NARRATIVE: CASE EVENT DATE: 2013
